FAERS Safety Report 8107387-7 (Version None)
Quarter: 2012Q1

REPORT INFORMATION
  Report Type: 
  Country: None (occurrence: None)
  Receive Date: 20120202
  Receipt Date: 20120124
  Transmission Date: 20120608
  Serious: No
  Sender: FDA-Public Use
  Company Number: US-BAYER-2012-008402

PATIENT
  Sex: Male

DRUGS (1)
  1. AVELOX [Suspect]
     Route: 048

REACTIONS (1)
  - PALPITATIONS [None]
